FAERS Safety Report 7377778-0 (Version None)
Quarter: 2011Q1

REPORT INFORMATION
  Report Type: 
  Country: None (occurrence: None)
  Receive Date: 20110328
  Receipt Date: 20110321
  Transmission Date: 20110831
  Serious: Yes (Death, Life-Threatening, Hospitalization)
  Sender: FDA-Public Use
  Company Number: US-ROCHE-451706

PATIENT
  Sex: Female
  Weight: 120.6 kg

DRUGS (15)
  1. COREG [Concomitant]
     Dates: start: 20060306, end: 20070210
  2. TOCILIZUMAB [Suspect]
     Dosage: STUDY WA18062.
     Route: 042
  3. TOCILIZUMAB [Suspect]
     Indication: RHEUMATOID ARTHRITIS
     Dosage: DOSE FORM: INFUSION, LAST DOSE PRIOR TO SAE : 01 JUNE 2006, IN STUDY WA18696.
     Route: 042
     Dates: start: 20060504, end: 20060608
  4. DIFLUCAN [Concomitant]
     Dates: end: 20070210
  5. ZOSYN [Concomitant]
     Dates: end: 20070210
  6. ACETAMINOPHEN [Concomitant]
     Dates: start: 20000101, end: 20070210
  7. ERYTHROMYCIN [Concomitant]
     Dates: end: 20070210
  8. METHOTREXATE [Suspect]
     Route: 065
     Dates: start: 20051222, end: 20070210
  9. ZOCOR [Concomitant]
     Dates: start: 20060306, end: 20070210
  10. AVANDARYL [Concomitant]
     Dosage: TOTAL DOSING AMOUNT: 4MG / 2MG.
     Dates: start: 20060306, end: 20070210
  11. LEVOTHYROX [Concomitant]
     Dates: start: 20060306, end: 20070210
  12. ASPIRIN [Concomitant]
     Dates: start: 20060306, end: 20070210
  13. CIPRO [Concomitant]
     Dates: end: 20070210
  14. PREDNISONE [Suspect]
     Route: 065
     Dates: start: 20060216, end: 20070210
  15. COZAAR [Concomitant]
     Dates: start: 20060306, end: 20070210

REACTIONS (3)
  - INTESTINAL ISCHAEMIA [None]
  - ABDOMINAL ABSCESS [None]
  - DIVERTICULAR PERFORATION [None]
